FAERS Safety Report 7083551-3 (Version None)
Quarter: 2010Q4

REPORT INFORMATION
  Report Type: 
  Country: None (occurrence: None)
  Receive Date: 20101103
  Receipt Date: 20101103
  Transmission Date: 20110411
  Serious: Yes (Hospitalization)
  Sender: FDA-Public Use
  Company Number: None

PATIENT
  Age: 50 Year
  Sex: Female
  Weight: 67.1324 kg

DRUGS (1)
  1. ISONIAZID [Suspect]
     Indication: LATENT TUBERCULOSIS
     Dosage: 300MG P.O. DAILY
     Route: 048
     Dates: start: 20100520, end: 20101004

REACTIONS (4)
  - CHROMATURIA [None]
  - FATIGUE [None]
  - JAUNDICE [None]
  - MALAISE [None]
